FAERS Safety Report 22603140 (Version 1)
Quarter: 2023Q2

REPORT INFORMATION
  Report Type: Spontaneous
  Country: ES (occurrence: ES)
  Receive Date: 20230615
  Receipt Date: 20230615
  Transmission Date: 20230722
  Serious: Yes (Other)
  Sender: FDA-Public Use
  Company Number: None

PATIENT
  Age: 19 Year
  Sex: Male
  Weight: 60 kg

DRUGS (3)
  1. BETAMETHASONE DIPROPIONATE\GENTAMICIN SULFATE [Suspect]
     Active Substance: BETAMETHASONE DIPROPIONATE\GENTAMICIN SULFATE
     Indication: Infected skin ulcer
     Dosage: APPLICATION ONCE AT NIGHT; 0.5 MG/G + 1 MG/G CREAM, 1 TUBE OF 30 G
     Route: 058
     Dates: start: 20230510, end: 20230524
  2. ALPRAZOLAM [Concomitant]
     Active Substance: ALPRAZOLAM
     Indication: Anxiety
     Dosage: ONE TABLET AT NIGHT; 0.5 MG TABLETS GENERIC, 30 TABLETS
     Dates: start: 20230503
  3. DIAZEPAN NORMON [Concomitant]
     Indication: Myalgia
     Dosage: ONE TABLET AT NIGHT, 10 MG TABLETS GENERIC, 30 TABLETS
     Dates: start: 20230301

REACTIONS (4)
  - Irritability [Unknown]
  - Pruritus [Unknown]
  - Application site erythema [Unknown]
  - Skin fissures [Unknown]

NARRATIVE: CASE EVENT DATE: 20230528
